FAERS Safety Report 25684687 (Version 1)
Quarter: 2025Q3

REPORT INFORMATION
  Report Type: Spontaneous
  Country: US (occurrence: US)
  Receive Date: 20250815
  Receipt Date: 20250815
  Transmission Date: 20251021
  Serious: No
  Sender: DR REDDYS
  Company Number: None

PATIENT
  Age: 4 Decade

DRUGS (2)
  1. CLOZAPINE [Suspect]
     Active Substance: CLOZAPINE
     Indication: Schizophrenia
     Dosage: FOUR YEARS DURING WHICH DOSE WAS TITRATED TO A MAXIMUM OF 900 MG DAILY
  2. CLOZAPINE [Suspect]
     Active Substance: CLOZAPINE
     Indication: Psychotic symptom

REACTIONS (2)
  - Salivary hypersecretion [Unknown]
  - Weight increased [Unknown]
